FAERS Safety Report 11885229 (Version 1)
Quarter: 2016Q1

REPORT INFORMATION
  Report Type: Spontaneous
  Country: TR (occurrence: TR)
  Receive Date: 20160104
  Receipt Date: 20160104
  Transmission Date: 20160526
  Serious: Yes (Hospitalization)
  Sender: FDA-Public Use
  Company Number: PHHY2015TR075512

PATIENT
  Age: 75 Year
  Sex: Female

DRUGS (16)
  1. PAROXETINE [Suspect]
     Active Substance: PAROXETINE\PAROXETINE HYDROCHLORIDE
     Indication: VERTIGO
  2. BETAHISTINE [Suspect]
     Active Substance: BETAHISTINE
     Indication: NEURODEGENERATIVE DISORDER
     Dosage: 16 MG, QD
     Route: 065
  3. ENTACAPONE. [Suspect]
     Active Substance: ENTACAPONE
     Indication: DEPRESSION
  4. DOMPERIDONE [Suspect]
     Active Substance: DOMPERIDONE
     Indication: NEURODEGENERATIVE DISORDER
     Dosage: 30 MG, QD
     Route: 065
  5. PAROXETINE [Suspect]
     Active Substance: PAROXETINE\PAROXETINE HYDROCHLORIDE
     Indication: DEPRESSION
     Dosage: 10 MG, QD
     Route: 065
  6. CARBIDOPA. [Suspect]
     Active Substance: CARBIDOPA
     Indication: NEURODEGENERATIVE DISORDER
     Dosage: 100 MG, QD
     Route: 065
  7. CARBIDOPA. [Suspect]
     Active Substance: CARBIDOPA
     Indication: VERTIGO
  8. DOMPERIDONE [Suspect]
     Active Substance: DOMPERIDONE
     Indication: DEPRESSION
  9. BETAHISTINE [Suspect]
     Active Substance: BETAHISTINE
     Indication: DEPRESSION
  10. L DOPA [Suspect]
     Active Substance: LEVODOPA
     Indication: NEURODEGENERATIVE DISORDER
     Dosage: 200 MG, QD
     Route: 065
  11. ENTACAPONE. [Suspect]
     Active Substance: ENTACAPONE
     Indication: NEURODEGENERATIVE DISORDER
     Dosage: 25 MG, QD
     Route: 065
  12. DOMPERIDONE [Suspect]
     Active Substance: DOMPERIDONE
     Indication: VERTIGO
  13. BETAHISTINE [Suspect]
     Active Substance: BETAHISTINE
     Indication: VERTIGO
  14. CARBIDOPA. [Suspect]
     Active Substance: CARBIDOPA
     Indication: DEPRESSION
  15. AMANTADINE [Suspect]
     Active Substance: AMANTADINE
     Indication: NEURODEGENERATIVE DISORDER
     Dosage: 100 MG, QD
     Route: 065
  16. PAROXETINE [Suspect]
     Active Substance: PAROXETINE\PAROXETINE HYDROCHLORIDE
     Indication: NEURODEGENERATIVE DISORDER

REACTIONS (6)
  - Mental status changes [Recovered/Resolved]
  - Urinary incontinence [Recovered/Resolved]
  - Drug ineffective [Unknown]
  - Tachycardia [Recovered/Resolved]
  - Muscle rigidity [Recovered/Resolved]
  - Neuroleptic malignant syndrome [Recovered/Resolved]
